FAERS Safety Report 7280072-X (Version None)
Quarter: 2011Q1

REPORT INFORMATION
  Report Type: 
  Country: None (occurrence: None)
  Receive Date: 20110208
  Receipt Date: 20110119
  Transmission Date: 20110831
  Serious: No
  Sender: FDA-Public Use
  Company Number: US-B.I. PHARMACEUTICALS,INC./RIDGEFIELD-2011-BP-01936BP

PATIENT
  Sex: Female

DRUGS (8)
  1. LEVOTHYROXINE SODIUM [Concomitant]
     Indication: HYPOTHYROIDISM
     Dosage: 50 MG
  2. CALCIUM/MAGNESIUM/ZINC [Concomitant]
     Indication: PROPHYLAXIS
     Dosage: 33 MG
  3. MULTI-VITAMIN [Concomitant]
     Indication: PROPHYLAXIS
  4. METOPROLOL TARTRATE [Concomitant]
     Indication: HEART RATE IRREGULAR
     Dosage: 50 MG
  5. PRILOSEC [Concomitant]
     Indication: GASTROOESOPHAGEAL REFLUX DISEASE
     Dosage: 20 MG
  6. LOVASTATIN [Concomitant]
     Indication: BLOOD CHOLESTEROL INCREASED
     Dosage: 20 MG
  7. PRADAXA [Suspect]
     Indication: ATRIAL FIBRILLATION
     Dosage: 300 MG
     Route: 048
     Dates: start: 20110107
  8. IRON [Concomitant]
     Indication: ANAEMIA
     Dosage: 325 MG

REACTIONS (2)
  - PRURITUS GENERALISED [None]
  - MUSCULAR WEAKNESS [None]
